FAERS Safety Report 9025846 (Version 1)
Quarter: 2013Q1

REPORT INFORMATION
  Report Type: Spontaneous
  Country: US (occurrence: None)
  Receive Date: 20130104
  Receipt Date: 20130104
  Transmission Date: 20140127
  Serious: Yes (Other)
  Sender: FDA-Public Use
  Company Number: 12-00372

PATIENT
  Sex: Male

DRUGS (1)
  1. ASTHMANEFRIN [Suspect]
     Indication: RESPIRATORY DISTRESS

REACTIONS (1)
  - Unevaluable event [None]
